FAERS Safety Report 8322999-3 (Version None)
Quarter: 2012Q2

REPORT INFORMATION
  Report Type: 
  Country: None (occurrence: None)
  Receive Date: 20120430
  Receipt Date: 20120426
  Transmission Date: 20120825
  Serious: Yes (Hospitalization, Other)
  Sender: FDA-Public Use
  Company Number: US-PFIZER INC-2012031154

PATIENT
  Sex: Female
  Weight: 65.9 kg

DRUGS (16)
  1. CARBOPLATIN [Suspect]
     Dosage: 565 MG, EVERY 3 WEEKS
     Route: 042
     Dates: start: 20111020, end: 20111020
  2. METOPROLOL TARTRATE [Suspect]
     Indication: HYPERTENSION
     Dosage: 25 MG, 1X/DAY
     Route: 048
     Dates: start: 20110916
  3. CELEBREX [Suspect]
     Indication: ARTHRITIS
     Dosage: 200 MG, 1X/DAY
     Route: 048
     Dates: start: 20070101, end: 20111101
  4. MS CONTIN [Concomitant]
     Dosage: 15 MG, 2X/DAY, AS NEEDED
     Dates: start: 20110711
  5. BENADRYL [Concomitant]
     Dosage: UNK
  6. AXITINIB [Suspect]
     Indication: METASTATIC MALIGNANT MELANOMA
     Dosage: 5 MG, 2X/DAY
     Route: 048
     Dates: start: 20110628
  7. AXITINIB [Suspect]
     Dosage: 3 MG, 2X/DAY, CONTINUOUSLY
     Route: 048
     Dates: start: 20111130
  8. PACLITAXEL [Suspect]
     Dosage: 215 MG, EVERY 3 WEEKS
     Route: 042
     Dates: start: 20111020, end: 20111020
  9. CELEBREX [Suspect]
     Dosage: 200 MG, 1X/DAY
     Route: 048
  10. CARBOPLATIN [Suspect]
     Indication: METASTATIC MALIGNANT MELANOMA
     Dosage: 670 MG, UNK
     Route: 042
     Dates: start: 20110922, end: 20110922
  11. PREMPRO [Suspect]
     Indication: ARTHRITIS
     Dosage: 0.625 MG/2.5 MG, 1X/DAY
     Route: 048
     Dates: start: 20070101
  12. WELLBUTRIN [Concomitant]
     Dosage: 200 MG, 2X/DAY
     Dates: start: 20030101
  13. ZOFRAN [Concomitant]
     Dosage: 8 MG, AS NEEDED  EVERY 8 HOURS
     Dates: start: 20110501
  14. PACLITAXEL [Suspect]
     Indication: METASTATIC MALIGNANT MELANOMA
     Dosage: 300 MG, UNK
     Route: 042
     Dates: start: 20110922, end: 20110922
  15. MEGACE [Suspect]
     Indication: DECREASED APPETITE
     Dosage: 5CC, 1X/DAY
     Route: 048
     Dates: start: 20110927, end: 20111004
  16. MEGACE [Suspect]
     Dosage: 5 CC, 1X/DAY
     Route: 048
     Dates: start: 20111128

REACTIONS (2)
  - ANAEMIA [None]
  - VAGINAL HAEMORRHAGE [None]
